FAERS Safety Report 14670670 (Version 1)
Quarter: 2018Q1

REPORT INFORMATION
  Report Type: Spontaneous
  Country: GB (occurrence: GB)
  Receive Date: 20180322
  Receipt Date: 20180322
  Transmission Date: 20180509
  Serious: Yes (Other)
  Sender: FDA-Public Use
  Company Number: GB-TEVA-2018-GB-873441

PATIENT
  Age: 75 Year
  Sex: Male
  Weight: 71 kg

DRUGS (4)
  1. HYPROMELLOSE [Concomitant]
     Active Substance: HYPROMELLOSES
     Route: 065
  2. FENBID [Concomitant]
     Active Substance: IBUPROFEN
     Dosage: APPLY TO AFFECTED AREA(S) THREE TIMES DAILY WHE...
     Route: 065
  3. SIMVASTATIN. [Suspect]
     Active Substance: SIMVASTATIN
     Route: 065
  4. COCODAMOL [Concomitant]
     Active Substance: ACETAMINOPHEN\CODEINE PHOSPHATE
     Dosage: ONE OR TWO TO BE TAKEN FOUR TIMES A DAY
     Route: 065

REACTIONS (1)
  - Musculoskeletal stiffness [Recovered/Resolved]
